FAERS Safety Report 8428806-2 (Version None)
Quarter: 2012Q2

REPORT INFORMATION
  Report Type: 
  Country: None (occurrence: None)
  Receive Date: 20120604
  Receipt Date: 20120525
  Transmission Date: 20120825
  Serious: Yes (Hospitalization)
  Sender: FDA-Public Use
  Company Number: 1262254

PATIENT
  Age: 75 Year
  Sex: Female

DRUGS (13)
  1. ALDACTONE [Concomitant]
  2. VITAMIN D [Concomitant]
  3. MORPHINE SULFATE [Concomitant]
  4. TRAMADOL HCL [Concomitant]
  5. ZOMETA [Concomitant]
  6. PACLITAXEL [Suspect]
     Indication: CHEMOTHERAPY
     Dosage: 1429 MG (155 MG, 1 IN 1 WEEKS)
     Dates: start: 20120203, end: 20120210
  7. CARBOPLATIN [Suspect]
     Indication: CHEMOTHERAPY
     Dosage: 637 MG, INTRAVENOUS
     Route: 042
     Dates: start: 20120203
  8. CALCIUM CARBONATE [Concomitant]
  9. METHYLPREDNISOLONE [Concomitant]
  10. MORPHINE SULFATE [Concomitant]
  11. PRIMPERAN TAB [Concomitant]
  12. XANAX [Concomitant]
  13. ACETAMINOPHEN [Concomitant]

REACTIONS (1)
  - PSEUDOMEMBRANOUS COLITIS [None]
